FAERS Safety Report 13675413 (Version 2)
Quarter: 2017Q3

REPORT INFORMATION
  Report Type: Spontaneous
  Country: US (occurrence: US)
  Receive Date: 20170621
  Receipt Date: 20170704
  Transmission Date: 20171127
  Serious: Yes (Life-Threatening, Hospitalization)
  Sender: FDA-Public Use
  Company Number: US-UNITED THERAPEUTICS-UNT-2017-007374

PATIENT
  Age: 12 Month
  Sex: Male
  Weight: 7.48 kg

DRUGS (3)
  1. REMODULIN [Suspect]
     Active Substance: TREPROSTINIL
     Indication: PULMONARY HYPERTENSION
     Dosage: 0.03333 ?G/KG, CONTINUING
     Route: 058
     Dates: start: 20160404
  2. SILDENAFIL CITRATE. [Concomitant]
     Active Substance: SILDENAFIL CITRATE
     Indication: PRODUCT USED FOR UNKNOWN INDICATION
  3. REMODULIN [Suspect]
     Active Substance: TREPROSTINIL
     Dosage: UNK
     Route: 058
     Dates: start: 20170406

REACTIONS (2)
  - Atrial septal defect [Recovered/Resolved]
  - Cardiopulmonary failure [Not Recovered/Not Resolved]

NARRATIVE: CASE EVENT DATE: 20170513
